FAERS Safety Report 9834807 (Version 1)
Quarter: 2014Q1

REPORT INFORMATION
  Report Type: Spontaneous
  Country: ES (occurrence: ES)
  Receive Date: 20140122
  Receipt Date: 20140122
  Transmission Date: 20141002
  Serious: Yes (Hospitalization, Other)
  Sender: FDA-Public Use
  Company Number: ES-PFIZER INC-2014017464

PATIENT
  Age: 72 Year
  Sex: Male

DRUGS (1)
  1. TRANGOREX [Suspect]
     Dosage: 200 MG, DAILY
     Route: 048
     Dates: start: 201302, end: 20131017

REACTIONS (6)
  - Hypothyroidism [Recovering/Resolving]
  - Pneumonia pneumococcal [Unknown]
  - Respiratory failure [Unknown]
  - Renal failure [Unknown]
  - Anaemia [Unknown]
  - Iron deficiency [Unknown]
